FAERS Safety Report 5117950-3 (Version None)
Quarter: 2006Q3

REPORT INFORMATION
  Report Type: 
  Country: None (occurrence: None)
  Receive Date: 20060926
  Receipt Date: 20060913
  Transmission Date: 20061208
  Serious: Yes (Death, Hospitalization)
  Sender: FDA-Public Use
  Company Number: 2006AD000070

PATIENT
  Age: 69 Year
  Sex: Female

DRUGS (2)
  1. KEFLEX [Suspect]
     Indication: DRUG USE FOR UNKNOWN INDICATION
     Dates: start: 20060101, end: 20060101
  2. METRONIDAZOLE [Suspect]
     Indication: DRUG USE FOR UNKNOWN INDICATION
     Dates: start: 20060101, end: 20060101

REACTIONS (6)
  - ACIDOSIS [None]
  - DIARRHOEA [None]
  - DIVERTICULITIS [None]
  - HAEMORRHAGE [None]
  - INTESTINAL ISCHAEMIA [None]
  - VOMITING [None]
